FAERS Safety Report 5582678-2 (Version None)
Quarter: 2008Q1

REPORT INFORMATION
  Report Type: 
  Country: None (occurrence: None)
  Receive Date: 20080107
  Receipt Date: 20071224
  Transmission Date: 20080703
  Serious: Yes (Hospitalization)
  Sender: FDA-Public Use
  Company Number: KR-ELI_LILLY_AND_COMPANY-KR200712001116

PATIENT
  Age: 36 Year
  Sex: Male

DRUGS (3)
  1. OLANZAPINE [Suspect]
     Indication: MANIA
     Dosage: 20 MG, BID-TID
     Route: 048
     Dates: start: 20070910
  2. OLANZAPINE [Suspect]
     Dosage: 10 MG, UNKNOWN
     Route: 048
  3. VALPROATE SODIUM [Concomitant]
     Indication: MOOD ALTERED
     Dosage: 1500 MG, 3/D
     Route: 048
     Dates: start: 20070910

REACTIONS (1)
  - RESTLESS LEGS SYNDROME [None]
